FAERS Safety Report 25947509 (Version 1)
Quarter: 2025Q4

REPORT INFORMATION
  Report Type: Spontaneous
  Country: TR (occurrence: TR)
  Receive Date: 20251022
  Receipt Date: 20251022
  Transmission Date: 20260117
  Serious: Yes (Death, Other)
  Sender: KARYOPHARM THERAPEUTICS
  Company Number: TR-KARYOPHARM-2025KPT100840

PATIENT

DRUGS (1)
  1. SELINEXOR [Suspect]
     Active Substance: SELINEXOR
     Indication: Product used for unknown indication
     Dosage: 20 MG 1/WEEK
     Route: 065

REACTIONS (2)
  - Tumour lysis syndrome [Fatal]
  - Drug ineffective [Unknown]
